FAERS Safety Report 24201866 (Version 1)
Quarter: 2024Q3

REPORT INFORMATION
  Report Type: Spontaneous
  Country: US (occurrence: US)
  Receive Date: 20240812
  Receipt Date: 20240812
  Transmission Date: 20241016
  Serious: No
  Sender: JOURNEY MEDICAL CORPORATION
  Company Number: US-JOURNEY MEDICAL CORPORATION-2024JNY00115

PATIENT
  Sex: Female

DRUGS (1)
  1. QBREXZA [Suspect]
     Active Substance: GLYCOPYRRONIUM TOSYLATE
     Indication: Hyperhidrosis
     Dosage: 5 WIPES UNDER EACH ARM
     Route: 061
     Dates: start: 20240607, end: 20240608

REACTIONS (2)
  - Dysuria [Not Recovered/Not Resolved]
  - Extra dose administered [Recovered/Resolved]

NARRATIVE: CASE EVENT DATE: 20240607
